FAERS Safety Report 11848594 (Version 1)
Quarter: 2015Q4

REPORT INFORMATION
  Report Type: Spontaneous
  Country: GB (occurrence: GB)
  Receive Date: 20151218
  Receipt Date: 20151218
  Transmission Date: 20160305
  Serious: Yes (Other)
  Sender: FDA-Public Use
  Company Number: GB-AMGEN-GBRSP2015130146

PATIENT
  Age: 67 Year
  Sex: Female

DRUGS (1)
  1. ENBREL [Suspect]
     Active Substance: ETANERCEPT
     Indication: RHEUMATOID ARTHRITIS
     Dosage: 50 MG, WEEKLY
     Route: 065
     Dates: start: 20151016

REACTIONS (6)
  - Arthralgia [Unknown]
  - Blister [Unknown]
  - Blister infected [Unknown]
  - Thermal burn [Unknown]
  - Headache [Unknown]
  - Burn infection [Unknown]

NARRATIVE: CASE EVENT DATE: 2015
